FAERS Safety Report 8069712-5 (Version None)
Quarter: 2012Q1

REPORT INFORMATION
  Report Type: 
  Country: None (occurrence: None)
  Receive Date: 20120125
  Receipt Date: 20110209
  Transmission Date: 20120608
  Serious: No
  Sender: FDA-Public Use
  Company Number: US-PFIZER INC-2011US-41845

PATIENT
  Sex: Female

DRUGS (9)
  1. CALAN [Suspect]
     Indication: HYPERTENSION
     Dosage: 360 MG, 2X/DAY
     Route: 048
  2. MAGNESIUM [Concomitant]
     Dosage: UNK
     Route: 065
  3. PROCARDIA [Suspect]
     Indication: HYPERTENSION
     Dosage: UNK
     Route: 065
  4. CALCIUM [Concomitant]
     Dosage: UNK
     Route: 065
  5. ZANTAC [Concomitant]
     Dosage: UNK
     Route: 065
  6. CARDIZEM [Suspect]
     Indication: HYPERTENSION
     Dosage: UNK
     Route: 065
  7. FUROSEMIDE [Concomitant]
     Dosage: UNK
     Route: 065
  8. ATACAND [Concomitant]
     Dosage: UNK
     Route: 065
  9. LOPRESSOR [Concomitant]
     Dosage: UNK
     Route: 065

REACTIONS (2)
  - RASH [None]
  - MEDICATION ERROR [None]
